FAERS Safety Report 5318376-X (Version None)
Quarter: 2007Q1

REPORT INFORMATION
  Report Type: 
  Country: None (occurrence: None)
  Receive Date: 20070130
  Receipt Date: 20061207
  Transmission Date: 20070707
  Serious: No
  Sender: FDA-Public Use
  Company Number: 200618696US

PATIENT
  Age: 69 Year
  Sex: Male
  Weight: 100 kg

DRUGS (5)
  1. KETEK [Suspect]
     Indication: LYME DISEASE
     Dosage: QD; A FEW DAYS
     Dates: start: 20060601
  2. MESTINON [Concomitant]
  3. LOTREL [Concomitant]
  4. ........... [Concomitant]
  5. .................... [Concomitant]

REACTIONS (4)
  - ASTHENIA [None]
  - DIPLOPIA [None]
  - LYME DISEASE [None]
  - VISION BLURRED [None]
